FAERS Safety Report 14102311 (Version 2)
Quarter: 2017Q4

REPORT INFORMATION
  Report Type: Spontaneous
  Country: US (occurrence: US)
  Receive Date: 20171018
  Receipt Date: 20171024
  Transmission Date: 20180321
  Serious: No
  Sender: FDA-Public Use
  Company Number: US-PFIZER INC-2017450957

PATIENT
  Age: 13 Year
  Sex: Male

DRUGS (2)
  1. GENOTROPIN [Suspect]
     Active Substance: SOMATROPIN
     Dosage: UNK [1.2]
  2. GENOTROPIN [Suspect]
     Active Substance: SOMATROPIN
     Dosage: UNK [1.4]

REACTIONS (1)
  - Protein total increased [Unknown]
